FAERS Safety Report 23128340 (Version 2)
Quarter: 2025Q4

REPORT INFORMATION
  Report Type: Spontaneous
  Country: KR (occurrence: KR)
  Receive Date: 20231031
  Receipt Date: 20251229
  Transmission Date: 20260118
  Serious: Yes (Hospitalization, Other)
  Sender: CELLTRION
  Company Number: KR-CELLTRION INC.-2023KR020452

PATIENT

DRUGS (3)
  1. INFLIXIMAB [Suspect]
     Active Substance: INFLIXIMAB
     Indication: Colitis ulcerative
     Dosage: UNK
     Route: 042
     Dates: start: 20230907
  2. METHYSOL [Concomitant]
     Indication: Colitis ulcerative
     Dosage: 45 MG, QD
     Route: 042
     Dates: start: 20230927, end: 20230927
  3. PREDNISOLONE [Concomitant]
     Active Substance: PREDNISOLONE
     Indication: Colitis ulcerative
     Dosage: 50 MG, QD
     Route: 048
     Dates: start: 20230928

REACTIONS (13)
  - Asthenia [Unknown]
  - Dyspnoea [Recovered/Resolved]
  - Nausea [Unknown]
  - Diarrhoea [Recovering/Resolving]
  - Haematochezia [Unknown]
  - Hyponatraemia [Unknown]
  - Hypophagia [Unknown]
  - Abdominal tenderness [Unknown]
  - Hyperthyroidism [Unknown]
  - Dysphagia [Recovering/Resolving]
  - Gastrooesophageal reflux disease [Unknown]
  - Abdominal pain [Recovering/Resolving]
  - Pyrexia [Unknown]

NARRATIVE: CASE EVENT DATE: 20230919
